FAERS Safety Report 25596797 (Version 3)
Quarter: 2025Q3

REPORT INFORMATION
  Report Type: Spontaneous
  Country: US (occurrence: US)
  Receive Date: 20250723
  Receipt Date: 20250822
  Transmission Date: 20251020
  Serious: Yes (Other)
  Sender: PFIZER
  Company Number: US-PFIZER INC-202500146490

PATIENT
  Age: 26 Year
  Sex: Male
  Weight: 63.05 kg

DRUGS (1)
  1. BICILLIN L-A [Suspect]
     Active Substance: PENICILLIN G BENZATHINE
     Indication: Syphilis
     Route: 030
     Dates: start: 20250521

REACTIONS (3)
  - Syncope [Recovered/Resolved]
  - Recalled product administered [Unknown]
  - Anxiety [Unknown]

NARRATIVE: CASE EVENT DATE: 20250101
